FAERS Safety Report 6429486-8 (Version None)
Quarter: 2009Q4

REPORT INFORMATION
  Report Type: 
  Country: None (occurrence: None)
  Receive Date: 20091105
  Receipt Date: 20090924
  Transmission Date: 20100525
  Serious: No
  Sender: FDA-Public Use
  Company Number: US-ABBOTT-09P-163-0599641-00

PATIENT
  Sex: Male

DRUGS (5)
  1. KALETRA [Suspect]
     Indication: HIV INFECTION
     Dosage: TWO TABLETS IN AM, TWO TABLETS IN PM.
     Dates: start: 20070101
  2. ADDERALL 10 [Suspect]
     Indication: DRUG USE FOR UNKNOWN INDICATION
  3. UNKNOWN MEDICATION FOR DEPRESSION [Suspect]
     Indication: DEPRESSION
  4. UNKNOWN MEDICATION FOR SLEEP [Suspect]
     Indication: INSOMNIA
  5. TRUVADA [Concomitant]
     Indication: HIV INFECTION
     Dosage: IN AM

REACTIONS (3)
  - DIARRHOEA [None]
  - DIZZINESS [None]
  - DRUG DOSE OMISSION [None]
